FAERS Safety Report 13272759 (Version 1)
Quarter: 2017Q1

REPORT INFORMATION
  Report Type: Spontaneous
  Country: US (occurrence: US)
  Receive Date: 20170227
  Receipt Date: 20170227
  Transmission Date: 20170428
  Serious: No
  Sender: FDA-Public Use
  Company Number: US-PFIZER INC-2017082792

PATIENT
  Age: 67 Year
  Sex: Female

DRUGS (1)
  1. SILVADENE [Suspect]
     Active Substance: SILVER SULFADIAZINE
     Indication: THERMAL BURN
     Dosage: 1 %, 2X/DAY
     Route: 062

REACTIONS (6)
  - Product container seal issue [Unknown]
  - Erythema [Unknown]
  - Drug ineffective [Unknown]
  - Limb discomfort [Unknown]
  - Poor quality drug administered [Unknown]
  - Pain [Unknown]
